FAERS Safety Report 24178487 (Version 4)
Quarter: 2025Q1

REPORT INFORMATION
  Report Type: Spontaneous
  Country: CL (occurrence: CL)
  Receive Date: 20240806
  Receipt Date: 20250210
  Transmission Date: 20250408
  Serious: No
  Sender: PFIZER
  Company Number: CL-PFIZER INC-202400225727

PATIENT
  Sex: Male

DRUGS (2)
  1. GENOTROPIN [Suspect]
     Active Substance: SOMATROPIN
  2. GENOTROPIN [Suspect]
     Active Substance: SOMATROPIN

REACTIONS (2)
  - Device leakage [Unknown]
  - Device malfunction [Unknown]
